FAERS Safety Report 20943189 (Version 1)
Quarter: 2022Q2

REPORT INFORMATION
  Report Type: Spontaneous
  Country: US (occurrence: None)
  Receive Date: 20220609
  Receipt Date: 20220609
  Transmission Date: 20220721
  Serious: Yes (unspecified)
  Sender: FDA-Public Use
  Company Number: None

PATIENT
  Age: 25 Year
  Sex: Female
  Weight: 58.97 kg

DRUGS (2)
  1. VIVITROL [Suspect]
     Active Substance: NALTREXONE
     Indication: Drug dependence
     Dosage: OTHER FREQUENCY : Q28 DAYS;?
     Route: 030
     Dates: start: 20220607
  2. VIVITROL [Concomitant]
     Active Substance: NALTREXONE
     Dates: start: 20220607

REACTIONS (4)
  - Injection site pruritus [None]
  - Injection site swelling [None]
  - Injection site warmth [None]
  - Cellulitis [None]

NARRATIVE: CASE EVENT DATE: 20220608
